FAERS Safety Report 21284100 (Version 3)
Quarter: 2023Q4

REPORT INFORMATION
  Report Type: Spontaneous
  Country: GB (occurrence: GB)
  Receive Date: 20220901
  Receipt Date: 20231017
  Transmission Date: 20240110
  Serious: Yes (Other)
  Sender: FDA-Public Use
  Company Number: GB-002147023-NVSC2022GB187801

PATIENT
  Age: 74 Year
  Sex: Male

DRUGS (3)
  1. BOSUTINIB [Suspect]
     Active Substance: BOSUTINIB
     Indication: Chronic myeloid leukaemia
     Dosage: 100 MG, 1X/DAY
     Route: 065
     Dates: start: 201608
  2. ASCIMINIB [Suspect]
     Active Substance: ASCIMINIB
     Indication: Chronic myeloid leukaemia
     Dosage: UNK
     Route: 065
     Dates: start: 201810
  3. IMATINIB [Suspect]
     Active Substance: IMATINIB
     Indication: Chronic myeloid leukaemia
     Dosage: 400 MG
     Route: 065
     Dates: start: 201505

REACTIONS (3)
  - Thrombocytopenia [Unknown]
  - Gastrointestinal stoma output increased [Unknown]
  - Muscle spasms [Unknown]
